FAERS Safety Report 4843008-4 (Version None)
Quarter: 2005Q4

REPORT INFORMATION
  Report Type: 
  Country: None (occurrence: None)
  Receive Date: 20051201
  Receipt Date: 20010724
  Transmission Date: 20060501
  Serious: Yes (Death, Life-Threatening, Hospitalization)
  Sender: FDA-Public Use
  Company Number: BR-ROCHE-264968

PATIENT
  Age: 33 Year
  Sex: Female
  Weight: 74.4 kg

DRUGS (7)
  1. INTERFERON ALFA-2A [Suspect]
     Route: 048
     Dates: start: 20010704
  2. RIBAVIRIN [Suspect]
     Dosage: WITH FOOD.
     Route: 048
     Dates: start: 20010704, end: 20010723
  3. DDC [Suspect]
     Indication: DRUG USE FOR UNKNOWN INDICATION
     Route: 065
     Dates: start: 19870615, end: 20010723
  4. 3TC [Suspect]
     Indication: DRUG USE FOR UNKNOWN INDICATION
     Route: 065
     Dates: start: 19970615, end: 20010723
  5. INDINAVIR [Suspect]
     Indication: DRUG USE FOR UNKNOWN INDICATION
     Route: 065
     Dates: start: 19970615, end: 20010723
  6. ENALAPRIL [Suspect]
     Indication: DRUG USE FOR UNKNOWN INDICATION
     Route: 065
     Dates: start: 20010702, end: 20010723
  7. HYDROCHLORTHIAZID [Suspect]
     Indication: DRUG USE FOR UNKNOWN INDICATION
     Route: 065
     Dates: start: 20010712, end: 20010723

REACTIONS (7)
  - ACUTE RESPIRATORY FAILURE [None]
  - BLOOD GLUCOSE INCREASED [None]
  - BLOOD TRIGLYCERIDES INCREASED [None]
  - BLOOD UREA INCREASED [None]
  - BLOOD URIC ACID DECREASED [None]
  - CONVULSION [None]
  - MYOCARDIAL INFARCTION [None]
